FAERS Safety Report 4545541-1 (Version None)
Quarter: 2005Q1

REPORT INFORMATION
  Report Type: 
  Country: None (occurrence: None)
  Receive Date: 20050103
  Receipt Date: 20041214
  Transmission Date: 20050727
  Serious: Yes (Hospitalization)
  Sender: FDA-Public Use
  Company Number: US_0412109174

PATIENT
  Age: 62 Year
  Sex: Male
  Weight: 8 kg

DRUGS (7)
  1. GEMCITABINE HYDROCHLORIDE-IV (GEMCITABINE) [Suspect]
     Indication: NON-SMALL CELL LUNG CANCER
     Dosage: 1000 MG/M2 OTHER
     Route: 050
     Dates: start: 20041111
  2. PACLITAXEL [Suspect]
     Indication: NON-SMALL CELL LUNG CANCER
     Dosage: 200 MG/M2 OTHER
     Route: 050
     Dates: start: 20041110
  3. FOLIC ACID [Concomitant]
  4. M.V.I. [Concomitant]
  5. CALCIUM GLUCONATE [Concomitant]
  6. ACETYLSALICYLIC ACID SRT [Concomitant]
  7. COLACE (DOCUSATE SODIUM) [Concomitant]

REACTIONS (7)
  - DUODENAL ULCER [None]
  - GASTRIC DISORDER [None]
  - GASTRIC OUTLET OBSTRUCTION [None]
  - HAEMOGLOBIN DECREASED [None]
  - METAPLASIA [None]
  - OESOPHAGITIS ULCERATIVE [None]
  - PLATELET COUNT DECREASED [None]
